FAERS Safety Report 14921523 (Version 1)
Quarter: 2018Q2

REPORT INFORMATION
  Report Type: Spontaneous
  Country: FR (occurrence: FR)
  Receive Date: 20180522
  Receipt Date: 20180522
  Transmission Date: 20180711
  Serious: Yes (Hospitalization)
  Sender: FDA-Public Use
  Company Number: FR-TEVA-2018-FR-895390

PATIENT
  Age: 81 Year
  Sex: Male
  Weight: 59 kg

DRUGS (3)
  1. PYOSTACINE [Suspect]
     Active Substance: PRISTINAMYCIN
     Indication: INFECTION
     Route: 065
     Dates: start: 20171119, end: 20171129
  2. FUROSEMIDE. [Suspect]
     Active Substance: FUROSEMIDE
     Indication: HYPERTENSIVE HEART DISEASE
     Route: 065
     Dates: end: 20171129
  3. COLCHICINE 0.10 PERCENT PODOPHYLLINE 2 PERCENT HOUDE,OINTMENT [Suspect]
     Active Substance: COLCHICINE\PODOPHYLLUM
     Indication: GOUT
     Route: 065
     Dates: start: 20171126, end: 20171127

REACTIONS (2)
  - Renal failure [Not Recovered/Not Resolved]
  - General physical health deterioration [Not Recovered/Not Resolved]

NARRATIVE: CASE EVENT DATE: 20171128
